FAERS Safety Report 8529934-3 (Version None)
Quarter: 2012Q3

REPORT INFORMATION
  Report Type: 
  Country: None (occurrence: None)
  Receive Date: 20120723
  Receipt Date: 20120716
  Transmission Date: 20120928
  Serious: Yes (Hospitalization)
  Sender: FDA-Public Use
  Company Number: US-BAYER-2012-072609

PATIENT
  Age: 21 Year
  Sex: Female

DRUGS (8)
  1. ADVAIR DISKUS 100/50 [Concomitant]
  2. LEVAQUIN [Concomitant]
  3. CEFTIN [Concomitant]
  4. ULTRAM [Concomitant]
  5. YASMIN [Suspect]
     Indication: POLYCYSTIC OVARIES
  6. FLONASE [Concomitant]
  7. YAZ [Suspect]
  8. XANAX [Concomitant]
     Indication: ANXIETY

REACTIONS (1)
  - DEEP VEIN THROMBOSIS [None]
